FAERS Safety Report 6401057-9 (Version None)
Quarter: 2009Q4

REPORT INFORMATION
  Report Type: 
  Country: None (occurrence: None)
  Receive Date: 20091009
  Receipt Date: 20091009
  Transmission Date: 20100525
  Serious: Yes (Other)
  Sender: FDA-Public Use
  Company Number: None

PATIENT
  Age: 62 Year
  Sex: Male
  Weight: 79.3795 kg

DRUGS (2)
  1. COREG [Suspect]
     Indication: HEART RATE ABNORMAL
     Dosage: 40MG REDUCED TO 10MG DAILY PO
     Route: 048
  2. CITALOPRAM HYDROBROMIDE [Suspect]
     Indication: GASTRIC DISORDER
     Dosage: 20NG INCREASED TO 30MG DAILY PO
     Route: 048

REACTIONS (5)
  - DRUG INTERACTION [None]
  - DYSPNOEA [None]
  - FATIGUE [None]
  - HEART RATE DECREASED [None]
  - HYPOTENSION [None]
